FAERS Safety Report 17612578 (Version 1)
Quarter: 2020Q2

REPORT INFORMATION
  Report Type: Spontaneous
  Country: CA (occurrence: CA)
  Receive Date: 20200401
  Receipt Date: 20200401
  Transmission Date: 20200713
  Serious: Yes (Other)
  Sender: FDA-Public Use
  Company Number: CA-BIOMARINAP-CA-2020-129322

PATIENT
  Age: 24 Year
  Sex: Male
  Weight: 94.3 kg

DRUGS (1)
  1. ALDURAZYME [Suspect]
     Active Substance: LARONIDASE
     Indication: MUCOPOLYSACCHARIDOSIS I
     Dosage: 55.1 MILLIGRAM, QW
     Route: 041
     Dates: start: 20010701

REACTIONS (2)
  - Atrial enlargement [Not Recovered/Not Resolved]
  - Mitral valve stenosis [Not Recovered/Not Resolved]
